FAERS Safety Report 7136550-7 (Version None)
Quarter: 2010Q4

REPORT INFORMATION
  Report Type: 
  Country: None (occurrence: None)
  Receive Date: 20101206
  Receipt Date: 20101129
  Transmission Date: 20110411
  Serious: Yes (Other)
  Sender: FDA-Public Use
  Company Number: GR-SHIRE-SPV1-2010-02085

PATIENT
  Sex: Male

DRUGS (2)
  1. FOSRENOL [Suspect]
     Indication: HYPERPHOSPHATAEMIA
     Dosage: UNK UNK, UNKNOWN
     Route: 048
  2. IRON [Concomitant]
     Indication: PRODUCT USED FOR UNKNOWN INDICATION
     Dosage: UNK, UNKNOWN
     Route: 065

REACTIONS (4)
  - GASTROINTESTINAL DISORDER [None]
  - HEPATIC NEOPLASM [None]
  - PANCREATIC NEOPLASM [None]
  - WEIGHT DECREASED [None]
